FAERS Safety Report 5666944-8 (Version None)
Quarter: 2008Q1

REPORT INFORMATION
  Report Type: 
  Country: None (occurrence: None)
  Receive Date: 20080315
  Receipt Date: 20080103
  Transmission Date: 20080703
  Serious: No
  Sender: FDA-Public Use
  Company Number: US-ABBOTT-08P-163-0432594-00

PATIENT
  Sex: Male
  Weight: 106.8 kg

DRUGS (13)
  1. HUMIRA [Suspect]
     Indication: CROHN'S DISEASE
     Route: 058
     Dates: start: 20071128
  2. HUMIRA [Suspect]
     Indication: COLITIS ULCERATIVE
  3. PREDNISONE [Concomitant]
     Indication: CROHN'S DISEASE
     Route: 048
  4. PREDNISONE [Concomitant]
     Indication: COLITIS ULCERATIVE
  5. MESALAMINE [Concomitant]
     Indication: CROHN'S DISEASE
     Route: 048
  6. INFLIXIMAB [Concomitant]
     Indication: CROHN'S DISEASE
  7. FOLIC ACID [Concomitant]
     Indication: VITAMIN SUPPLEMENTATION
  8. LISINOPRIL [Concomitant]
     Indication: HYPERTENSION
  9. SIMVASTATIN [Concomitant]
     Indication: BLOOD CHOLESTEROL INCREASED
  10. LOPERAMIDE HYDROCHLORIDE [Concomitant]
     Indication: CROHN'S DISEASE
  11. VICODIN [Concomitant]
     Indication: ABDOMINAL PAIN
  12. VICODIN [Concomitant]
     Indication: PROCTALGIA
  13. ATENOLOL [Concomitant]
     Indication: HYPERTENSION

REACTIONS (8)
  - ABDOMINAL PAIN [None]
  - EYE SWELLING [None]
  - HYPOAESTHESIA [None]
  - LIP SWELLING [None]
  - NAUSEA [None]
  - OCULAR HYPERAEMIA [None]
  - PROCTALGIA [None]
  - RECTAL HAEMORRHAGE [None]
